FAERS Safety Report 20084274 (Version 1)
Quarter: 2021Q4

REPORT INFORMATION
  Report Type: Spontaneous
  Country: CN (occurrence: None)
  Receive Date: 20211118
  Receipt Date: 20211118
  Transmission Date: 20220303
  Serious: Yes (Other)
  Sender: FDA-Public Use
  Company Number: CN-ROCHE-2955081

PATIENT
  Age: 53 Year
  Sex: Female

DRUGS (8)
  1. HERCEPTIN [Suspect]
     Active Substance: TRASTUZUMAB
     Indication: Invasive ductal breast carcinoma
     Dosage: THP
     Route: 065
     Dates: start: 20200915, end: 20201010
  2. HERCEPTIN [Suspect]
     Active Substance: TRASTUZUMAB
     Dosage: THP
     Route: 065
     Dates: start: 20201031, end: 20201230
  3. HERCEPTIN [Suspect]
     Active Substance: TRASTUZUMAB
     Dosage: HP FOR 1 YEAR
     Route: 065
  4. PERJETA [Suspect]
     Active Substance: PERTUZUMAB
     Indication: Invasive ductal breast carcinoma
     Dosage: THP
     Route: 065
     Dates: start: 20200915, end: 20201010
  5. PERJETA [Suspect]
     Active Substance: PERTUZUMAB
     Dosage: THP
     Route: 065
     Dates: start: 20201031, end: 20201230
  6. PERJETA [Suspect]
     Active Substance: PERTUZUMAB
     Dosage: HP FOR 1 YEAR
     Route: 065
  7. DOCETAXEL [Concomitant]
     Active Substance: DOCETAXEL
     Indication: Invasive ductal breast carcinoma
     Dosage: THP
     Dates: start: 20200915, end: 20201010
  8. PACLITAXEL [Concomitant]
     Active Substance: PACLITAXEL
     Indication: Invasive ductal breast carcinoma
     Dosage: THP
     Dates: start: 20201031, end: 20201230

REACTIONS (2)
  - White blood cell count decreased [Recovering/Resolving]
  - Platelet count decreased [Recovering/Resolving]
